FAERS Safety Report 7061192-1 (Version None)
Quarter: 2010Q4

REPORT INFORMATION
  Report Type: 
  Country: None (occurrence: None)
  Receive Date: 20101026
  Receipt Date: 20101015
  Transmission Date: 20110411
  Serious: Yes (Disabling)
  Sender: FDA-Public Use
  Company Number: US-BAYER-201037037NA

PATIENT
  Sex: Female

DRUGS (2)
  1. BETASERON [Suspect]
     Indication: MULTIPLE SCLEROSIS
     Route: 058
     Dates: start: 20100101, end: 20100101
  2. BETASERON [Suspect]
     Route: 058

REACTIONS (2)
  - MOBILITY DECREASED [None]
  - MUSCLE SPASMS [None]
